FAERS Safety Report 7531289 (Version 2)
Quarter: 2019Q1

REPORT INFORMATION
  Report Type: Spontaneous
  Country: ES (occurrence: ES)
  Receive Date: 20100806
  Receipt Date: 20190212
  Transmission Date: 20190418
  Serious: Yes (Other)
  Sender: FDA-Public Use
  Company Number: ES-PFIZER INC-2010093632

PATIENT
  Age: 30 Year
  Sex: Male

DRUGS (1)
  1. CHAMPIX [Suspect]
     Active Substance: VARENICLINE TARTRATE
     Indication: TOBACCO ABUSE
     Dosage: 0.5 MG, UNK
     Route: 065
     Dates: start: 20100202, end: 20100308

REACTIONS (1)
  - Trigeminal neuralgia [Unknown]

NARRATIVE: CASE EVENT DATE: 20100306
